FAERS Safety Report 11055176 (Version 1)
Quarter: 2015Q2

REPORT INFORMATION
  Report Type: Spontaneous
  Country: US (occurrence: US)
  Receive Date: 20150422
  Receipt Date: 20150422
  Transmission Date: 20150821
  Serious: No
  Sender: FDA-Public Use
  Company Number: US-SA-2015SA008429

PATIENT
  Age: 71 Year
  Sex: Female

DRUGS (3)
  1. SILVER NITRATE. [Concomitant]
     Active Substance: SILVER NITRATE
     Indication: THERMAL BURN
  2. AQUAPHOR /USA/ [Concomitant]
  3. ENOXAPARIN SODIUM - WINTHROP [Suspect]
     Active Substance: ENOXAPARIN SODIUM
     Indication: THROMBOSIS
     Route: 065
     Dates: start: 201412

REACTIONS (3)
  - Injection site nodule [Not Recovered/Not Resolved]
  - Injection site discolouration [Not Recovered/Not Resolved]
  - Dyspnoea [Not Recovered/Not Resolved]
